FAERS Safety Report 11888202 (Version 7)
Quarter: 2020Q2

REPORT INFORMATION
  Report Type: Report from Study
  Country: JP (occurrence: JP)
  Receive Date: 20160105
  Receipt Date: 20200608
  Transmission Date: 20200713
  Serious: Yes (Other)
  Sender: FDA-Public Use
  Company Number: JP-ASTELLAS-2010JP003369

PATIENT
  Age: 43 Year
  Sex: Female
  Weight: 61 kg

DRUGS (109)
  1. PREDNISOLONE. [Suspect]
     Active Substance: PREDNISOLONE
     Dosage: 5-17.5MG, ALTERNATELY/2DAYS
     Route: 048
     Dates: end: 20100616
  2. PREDNISOLONE. [Suspect]
     Active Substance: PREDNISOLONE
     Dosage: 5-20MG, ALTERNATELY/2DAYS
     Route: 048
     Dates: end: 20120104
  3. PREDNISOLONE. [Suspect]
     Active Substance: PREDNISOLONE
     Dosage: 5-15MG, ALTERNATELY/2DAYS
     Route: 048
     Dates: end: 20120801
  4. ZITHROMAC [Suspect]
     Active Substance: AZITHROMYCIN DIHYDRATE
     Indication: TOOTH EXTRACTION
     Route: 048
     Dates: end: 20111014
  5. ISODINE [Concomitant]
     Active Substance: POVIDONE-IODINE
     Indication: PRODUCT USED FOR UNKNOWN INDICATION
     Dosage: UNK UNK, UNKNOWN FREQ.
     Route: 061
  6. LUTORAL [Concomitant]
     Active Substance: CHLORMADINONE ACETATE
     Route: 048
     Dates: end: 20090124
  7. LUTORAL [Concomitant]
     Active Substance: CHLORMADINONE ACETATE
     Route: 048
     Dates: end: 20090704
  8. LUTORAL [Concomitant]
     Active Substance: CHLORMADINONE ACETATE
     Route: 048
     Dates: end: 20090728
  9. PARIET [Concomitant]
     Active Substance: RABEPRAZOLE SODIUM
     Indication: PROPHYLAXIS
     Dosage: 10-20 MG PER DAY
     Route: 048
  10. PARIET [Concomitant]
     Active Substance: RABEPRAZOLE SODIUM
     Indication: BACK PAIN
     Route: 048
     Dates: end: 20130515
  11. PARIET [Concomitant]
     Active Substance: RABEPRAZOLE SODIUM
     Indication: DYSPEPSIA
     Route: 048
     Dates: end: 20150318
  12. SELBEX [Concomitant]
     Active Substance: TEPRENONE
     Indication: OROPHARYNGEAL PAIN
  13. GLAKAY [Concomitant]
     Active Substance: MENATETRENONE
     Indication: PROPHYLAXIS
     Route: 048
  14. INCREMIN /00023544/ [Concomitant]
     Active Substance: FERRIC PYROPHOSPHATE
     Indication: PROPHYLAXIS
  15. LAC-B [Concomitant]
     Active Substance: BIFIDOBACTERIUM SPP.
     Indication: ENTEROCOLITIS VIRAL
     Route: 048
     Dates: end: 20120305
  16. EPADEL-S [Concomitant]
     Active Substance: ICOSAPENT ETHYL
     Indication: LUPUS NEPHRITIS
     Route: 048
     Dates: end: 20130320
  17. EDIROL [Concomitant]
     Active Substance: ELDECALCITOL
     Indication: PROPHYLAXIS
     Dosage: 0.75 MCG, ONCE DAILY
     Route: 048
  18. IMURAN [Concomitant]
     Active Substance: AZATHIOPRINE
     Indication: LUPUS NEPHRITIS
     Route: 048
     Dates: end: 20130417
  19. BREDININ [Concomitant]
     Active Substance: MIZORIBINE
     Route: 048
     Dates: end: 20130710
  20. PREDNISOLONE. [Suspect]
     Active Substance: PREDNISOLONE
     Dosage: 20-5MG, ALTERNATELY/2 DAYS
     Route: 048
     Dates: start: 20081204, end: 20090115
  21. PREDNISOLONE. [Suspect]
     Active Substance: PREDNISOLONE
     Dosage: 5-15MG, ALTERNATELY/2DAYS
     Route: 048
     Dates: end: 20101020
  22. PREDNISOLONE. [Suspect]
     Active Substance: PREDNISOLONE
     Dosage: 5-12.5MG, ALTERNATELY/2DAYS
     Route: 048
     Dates: end: 20110831
  23. PREDNISOLONE. [Suspect]
     Active Substance: PREDNISOLONE
     Route: 048
     Dates: end: 20140702
  24. PREDNISOLONE. [Suspect]
     Active Substance: PREDNISOLONE
     Route: 048
     Dates: end: 20160622
  25. FLOMOX [CEFCAPENE PIVOXIL HYDROCHLORIDE] [Suspect]
     Active Substance: CEFCAPENE PIVOXIL HYDROCHLORIDE
     Indication: OROPHARYNGEAL PAIN
     Route: 048
     Dates: end: 20111018
  26. CELLCEPT [Suspect]
     Active Substance: MYCOPHENOLATE MOFETIL\MYCOPHENOLATE MOFETIL HYDROCHLORIDE
     Route: 048
     Dates: start: 20150319, end: 20150722
  27. GASTER [Concomitant]
     Active Substance: FAMOTIDINE
     Indication: PRODUCT USED FOR UNKNOWN INDICATION
     Route: 048
  28. ALFAROL [Concomitant]
     Active Substance: ALFACALCIDOL
     Indication: PROPHYLAXIS
     Dosage: 0.25 ?G, ONCE DAILY
     Route: 048
  29. JUVELA                             /00110502/ [Concomitant]
     Active Substance: .ALPHA.-TOCOPHEROL ACETATE
     Route: 048
     Dates: end: 20150520
  30. PARIET [Concomitant]
     Active Substance: RABEPRAZOLE SODIUM
     Route: 048
     Dates: end: 20170104
  31. PARIET [Concomitant]
     Active Substance: RABEPRAZOLE SODIUM
     Route: 048
  32. PL [Concomitant]
     Active Substance: ACETAMINOPHEN\CAFFEINE\PROMETHAZINE\SALICYLAMIDE
     Indication: NASOPHARYNGITIS
     Route: 048
     Dates: end: 20110908
  33. BUSCOPAN [Concomitant]
     Active Substance: BUTYLSCOPOLAMINE BROMIDE
     Indication: ABDOMINAL PAIN
     Route: 048
     Dates: end: 20120808
  34. JUVELA N [Concomitant]
     Active Substance: TOCOPHERYL NICOTINATE, D-.ALPHA.
     Indication: RASH
     Route: 048
  35. BREDININ [Concomitant]
     Active Substance: MIZORIBINE
     Route: 048
     Dates: end: 20131016
  36. TACROLIMUS. [Interacting]
     Active Substance: TACROLIMUS
     Route: 048
  37. PREDNISOLONE. [Suspect]
     Active Substance: PREDNISOLONE
     Indication: LUPUS NEPHRITIS
     Route: 048
     Dates: end: 20080807
  38. PREDNISOLONE. [Suspect]
     Active Substance: PREDNISOLONE
     Dosage: 5-15MG, ALTERNATELY/2DAYS
     Route: 048
     Dates: end: 20130123
  39. PREDNISOLONE. [Suspect]
     Active Substance: PREDNISOLONE
     Route: 048
     Dates: end: 20130612
  40. PREDNISOLONE. [Suspect]
     Active Substance: PREDNISOLONE
     Route: 048
     Dates: end: 20130710
  41. PREDNISOLONE. [Suspect]
     Active Substance: PREDNISOLONE
     Route: 048
     Dates: end: 20140924
  42. PERSANTINE [Concomitant]
     Active Substance: DIPYRIDAMOLE
     Indication: LUPUS NEPHRITIS
     Route: 048
  43. FOSAMAC [Concomitant]
     Active Substance: ALENDRONATE SODIUM
     Indication: PRODUCT USED FOR UNKNOWN INDICATION
     Route: 048
     Dates: end: 20100128
  44. MEVALOTIN [Concomitant]
     Active Substance: PRAVASTATIN SODIUM
     Indication: HYPERLIPIDAEMIA
     Route: 048
     Dates: end: 20100909
  45. ONON [Concomitant]
     Active Substance: PRANLUKAST
     Indication: ALLERGIC COUGH
     Route: 048
     Dates: end: 20120801
  46. HIRUDOID                           /00723701/ [Concomitant]
     Active Substance: PENTOSAN POLYSULFATE SODIUM
     Indication: RASH
     Dosage: UNK UNK, UNKNOWN FREQ.
     Route: 061
     Dates: end: 20140219
  47. PREDNISOLONE. [Suspect]
     Active Substance: PREDNISOLONE
     Dosage: 25-5MG, ALTERNATELY/2DAYS
     Route: 048
     Dates: end: 20121121
  48. PREDNISOLONE. [Suspect]
     Active Substance: PREDNISOLONE
     Route: 048
  49. CELLCEPT [Suspect]
     Active Substance: MYCOPHENOLATE MOFETIL\MYCOPHENOLATE MOFETIL HYDROCHLORIDE
     Route: 048
  50. BAKTAR [Concomitant]
     Active Substance: SULFAMETHOXAZOLE\TRIMETHOPRIM
     Indication: PROPHYLAXIS
     Dosage: 2 DF, TWICE PER WEEK
     Route: 048
  51. SELBEX [Concomitant]
     Active Substance: TEPRENONE
     Indication: NASOPHARYNGITIS
     Route: 065
     Dates: end: 20100103
  52. MYSER                              /01249201/ [Concomitant]
     Active Substance: DIFLUPREDNATE
     Indication: RASH
     Dosage: UNK UNK, UNKNOWN FREQ.
     Route: 061
     Dates: end: 20101021
  53. RESTAMIN                           /00000401/ [Concomitant]
     Active Substance: DIPHENHYDRAMINE
     Indication: ECZEMA
     Dosage: UNK UNK, UNKNOWN FREQ.
     Route: 061
  54. EPADEL-S [Concomitant]
     Active Substance: ICOSAPENT ETHYL
     Route: 048
  55. BREDININ [Concomitant]
     Active Substance: MIZORIBINE
     Route: 048
     Dates: end: 20130918
  56. INDOMETACIN [Concomitant]
     Active Substance: INDOMETHACIN
     Indication: PAIN IN EXTREMITY
     Dosage: UNK UNK, UNKNOWN FREQ.
     Route: 061
     Dates: end: 20130612
  57. PREDNISOLONE. [Suspect]
     Active Substance: PREDNISOLONE
     Route: 048
     Dates: end: 20081204
  58. PREDNISOLONE. [Suspect]
     Active Substance: PREDNISOLONE
     Dosage: 15-5MG, ALTERNATELY/2 DAYS
     Route: 048
     Dates: end: 20100128
  59. PREDNISOLONE. [Suspect]
     Active Substance: PREDNISOLONE
     Dosage: 20-5MG, ALTERNATELY/2DAYS
     Route: 048
     Dates: end: 20100421
  60. PREDNISOLONE. [Suspect]
     Active Substance: PREDNISOLONE
     Dosage: 17.5-5MG, ALTERNATELY/2DAYS
     Route: 048
     Dates: end: 20130417
  61. FLOMOX [CEFCAPENE PIVOXIL HYDROCHLORIDE] [Suspect]
     Active Substance: CEFCAPENE PIVOXIL HYDROCHLORIDE
     Indication: NASOPHARYNGITIS
     Route: 048
     Dates: end: 20100101
  62. FLOMOX [CEFCAPENE PIVOXIL HYDROCHLORIDE] [Suspect]
     Active Substance: CEFCAPENE PIVOXIL HYDROCHLORIDE
     Indication: TOOTH EXTRACTION
  63. CELLCEPT [Suspect]
     Active Substance: MYCOPHENOLATE MOFETIL\MYCOPHENOLATE MOFETIL HYDROCHLORIDE
     Route: 048
     Dates: start: 20140417, end: 20150318
  64. PLAQUENIL S [Suspect]
     Active Substance: HYDROXYCHLOROQUINE SULFATE
     Indication: LUPUS NEPHRITIS
     Route: 048
     Dates: end: 20170412
  65. INCREMIN /00023544/ [Concomitant]
     Active Substance: FERRIC PYROPHOSPHATE
     Indication: IRON DEFICIENCY ANAEMIA
     Route: 048
     Dates: end: 20121219
  66. RESTAMIN                           /00000401/ [Concomitant]
     Active Substance: DIPHENHYDRAMINE
     Indication: PRURITUS
     Dosage: UNK UNK, UNKNOWN FREQ.
     Route: 061
     Dates: end: 20111005
  67. COCARL [Concomitant]
     Active Substance: ACETAMINOPHEN
     Indication: BACK PAIN
     Route: 048
     Dates: end: 20120115
  68. JUVELA N [Concomitant]
     Active Substance: TOCOPHERYL NICOTINATE, D-.ALPHA.
     Indication: LUPUS NEPHRITIS
     Route: 048
     Dates: end: 20130417
  69. LIPITOR [Interacting]
     Active Substance: ATORVASTATIN CALCIUM
     Indication: HYPERLIPIDAEMIA
     Route: 048
     Dates: end: 20130418
  70. PREDNISOLONE. [Suspect]
     Active Substance: PREDNISOLONE
     Dosage: 15-5MG, ALTERNATELY/2 DAYS
     Route: 048
     Dates: start: 20090521, end: 20090924
  71. PREDNISOLONE. [Suspect]
     Active Substance: PREDNISOLONE
     Route: 048
     Dates: end: 20140827
  72. LUTORAL [Concomitant]
     Active Substance: CHLORMADINONE ACETATE
     Indication: OVARIAN FAILURE
     Route: 048
     Dates: end: 20080712
  73. LOXONIN [Concomitant]
     Active Substance: LOXOPROFEN SODIUM
     Indication: OROPHARYNGEAL PAIN
  74. FERROMIA [Concomitant]
     Active Substance: SODIUM FERROUS CITRATE
     Indication: IRON DEFICIENCY ANAEMIA
     Route: 048
     Dates: end: 20110203
  75. LAC-B [Concomitant]
     Active Substance: BIFIDOBACTERIUM SPP.
     Indication: DIARRHOEA
     Route: 048
     Dates: end: 20121112
  76. PROPETO [Concomitant]
     Active Substance: PETROLATUM
     Indication: DRY SKIN
     Dosage: UNK UNK, UNKNOWN FREQ.
     Route: 061
     Dates: end: 20121018
  77. ZETIA [Concomitant]
     Active Substance: EZETIMIBE
     Indication: HYPERLIPIDAEMIA
     Route: 048
  78. RINDERON VG [Concomitant]
     Active Substance: BETAMETHASONE VALERATE\GENTAMICIN SULFATE
     Indication: RASH
     Dosage: UNK UNK, UNKNOWN FREQ.
     Route: 061
     Dates: end: 20140319
  79. PREDNISOLONE. [Suspect]
     Active Substance: PREDNISOLONE
     Dosage: 17.5-5MG, ALTERNATELY/2 DAYS
     Route: 048
     Dates: start: 20090115, end: 20090521
  80. PREDNISOLONE. [Suspect]
     Active Substance: PREDNISOLONE
     Route: 048
     Dates: end: 20140219
  81. PREDNISOLONE. [Suspect]
     Active Substance: PREDNISOLONE
     Route: 048
     Dates: end: 20141119
  82. PREDNISOLONE. [Suspect]
     Active Substance: PREDNISOLONE
     Route: 048
     Dates: end: 20151216
  83. CELLCEPT [Suspect]
     Active Substance: MYCOPHENOLATE MOFETIL\MYCOPHENOLATE MOFETIL HYDROCHLORIDE
     Route: 048
     Dates: start: 20150723, end: 20160330
  84. CELLCEPT [Suspect]
     Active Substance: MYCOPHENOLATE MOFETIL\MYCOPHENOLATE MOFETIL HYDROCHLORIDE
     Route: 048
     Dates: start: 20160331, end: 20170607
  85. BAKTAR [Concomitant]
     Active Substance: SULFAMETHOXAZOLE\TRIMETHOPRIM
     Dosage: 2 DF, THRICE PER WEEK
     Route: 048
  86. JUVELA                             /00110502/ [Concomitant]
     Active Substance: .ALPHA.-TOCOPHEROL ACETATE
     Indication: RASH
     Route: 048
  87. PARIET [Concomitant]
     Active Substance: RABEPRAZOLE SODIUM
     Route: 048
     Dates: end: 20170215
  88. LOXONIN [Concomitant]
     Active Substance: LOXOPROFEN SODIUM
     Indication: NASOPHARYNGITIS
     Route: 065
     Dates: end: 20100103
  89. MYSER                              /01249201/ [Concomitant]
     Active Substance: DIFLUPREDNATE
     Dosage: UNK UNK, UNKNOWN FREQ.
     Route: 061
     Dates: end: 20160220
  90. COCARL [Concomitant]
     Active Substance: ACETAMINOPHEN
     Indication: TOOTH EXTRACTION
     Route: 048
     Dates: end: 20111018
  91. BREDININ [Concomitant]
     Active Substance: MIZORIBINE
     Indication: LUPUS NEPHRITIS
     Route: 048
     Dates: end: 20130612
  92. BESOFTEN [Concomitant]
     Active Substance: PENTOSAN POLYSULFATE SODIUM
     Indication: RASH
     Dosage: 2 TUBES, UNKNOWN FREQ.
     Route: 050
     Dates: end: 20180214
  93. TACROLIMUS. [Suspect]
     Active Substance: TACROLIMUS
     Indication: LUPUS NEPHRITIS
     Route: 048
     Dates: end: 20140924
  94. TACROLIMUS. [Interacting]
     Active Substance: TACROLIMUS
     Route: 048
     Dates: end: 20141119
  95. TACROLIMUS. [Interacting]
     Active Substance: TACROLIMUS
     Route: 048
     Dates: end: 20170215
  96. PREDNISOLONE. [Suspect]
     Active Substance: PREDNISOLONE
     Dosage: 12.5-5MG, ALTERNATELY/2 DAYS
     Route: 048
     Dates: end: 20091105
  97. PREDNISOLONE. [Suspect]
     Active Substance: PREDNISOLONE
     Route: 048
     Dates: end: 20130918
  98. PREDNISOLONE. [Suspect]
     Active Substance: PREDNISOLONE
     Route: 048
     Dates: end: 20140115
  99. PREDNISOLONE. [Suspect]
     Active Substance: PREDNISOLONE
     Route: 048
     Dates: end: 20150121
  100. PREDNISOLONE. [Suspect]
     Active Substance: PREDNISOLONE
     Route: 048
     Dates: end: 20150218
  101. CELLCEPT [Suspect]
     Active Substance: MYCOPHENOLATE MOFETIL\MYCOPHENOLATE MOFETIL HYDROCHLORIDE
     Indication: LUPUS NEPHRITIS
     Route: 048
     Dates: end: 20140416
  102. CELLCEPT [Suspect]
     Active Substance: MYCOPHENOLATE MOFETIL\MYCOPHENOLATE MOFETIL HYDROCHLORIDE
     Route: 048
     Dates: end: 20171004
  103. LUTORAL [Concomitant]
     Active Substance: CHLORMADINONE ACETATE
     Route: 048
     Dates: end: 20121031
  104. PREMARIN [Concomitant]
     Active Substance: ESTROGENS, CONJUGATED
     Indication: OVARIAN FAILURE
     Route: 048
     Dates: end: 20121031
  105. BIOFERMIN R [Concomitant]
     Active Substance: DIETARY SUPPLEMENT\PROBIOTICS
     Indication: DIARRHOEA
     Route: 048
     Dates: end: 20111027
  106. LOPEMIN                            /00384302/ [Concomitant]
     Active Substance: LOPERAMIDE HYDROCHLORIDE
     Indication: ENTEROCOLITIS VIRAL
     Route: 048
     Dates: end: 20120301
  107. BREDININ [Concomitant]
     Active Substance: MIZORIBINE
     Route: 048
     Dates: end: 20140219
  108. KINDAVATE [Concomitant]
     Active Substance: CLOBETASONE BUTYRATE
     Indication: RASH
     Dosage: UNK UNK, UNKNOWN FREQ.
     Route: 061
     Dates: end: 20140115
  109. LANSOPRAZOLE. [Concomitant]
     Active Substance: LANSOPRAZOLE
     Indication: PROPHYLAXIS
     Route: 048

REACTIONS (28)
  - Muscle spasms [Recovering/Resolving]
  - Eczema [Recovering/Resolving]
  - Bronchitis [Recovering/Resolving]
  - Dental caries [Recovering/Resolving]
  - Pain in extremity [Recovering/Resolving]
  - Diarrhoea [Recovering/Resolving]
  - Allergic cough [Recovered/Resolved]
  - Nasopharyngitis [Recovering/Resolving]
  - Prescribed overdose [Unknown]
  - Diarrhoea [Recovering/Resolving]
  - Drug interaction [Unknown]
  - Nasopharyngitis [Recovering/Resolving]
  - Dry skin [Recovering/Resolving]
  - Adverse drug reaction [Unknown]
  - Oropharyngeal pain [Recovering/Resolving]
  - Pruritus [Recovering/Resolving]
  - Back pain [Recovering/Resolving]
  - Iron deficiency anaemia [Recovered/Resolved]
  - Prescribed underdose [Unknown]
  - Hyperlipidaemia [Not Recovered/Not Resolved]
  - Abdominal pain [Recovered/Resolved]
  - Aphthous ulcer [Recovering/Resolving]
  - Dyspepsia [Recovering/Resolving]
  - Back pain [Recovering/Resolving]
  - Tibia fracture [Recovering/Resolving]
  - Arthritis [Recovering/Resolving]
  - Enterocolitis viral [Recovering/Resolving]
  - Rash [Recovering/Resolving]

NARRATIVE: CASE EVENT DATE: 20090528
